FAERS Safety Report 12257165 (Version 1)
Quarter: 2016Q2

REPORT INFORMATION
  Report Type: Spontaneous
  Country: US (occurrence: US)
  Receive Date: 20160412
  Receipt Date: 20160412
  Transmission Date: 20160815
  Serious: No
  Sender: FDA-Public Use
  Company Number: US-MYLANLABS-2016M1006539

PATIENT
  Age: 67 Year
  Sex: Female
  Weight: 57.6 kg

DRUGS (3)
  1. LEVALBUTEROL INHALATION SOLUTION, USP [Suspect]
     Active Substance: LEVALBUTEROL
     Indication: ASTHMA
     Dosage: 1.25 MG/ 3ML, TID
     Route: 055
     Dates: start: 201602
  2. MEDROL [Suspect]
     Active Substance: METHYLPREDNISOLONE
     Indication: ASTHMA
     Dosage: 6 MG, QD
     Route: 048
  3. TOBRAMYCIN                         /00304202/ [Concomitant]
     Indication: SINUSITIS
     Dosage: UNK
     Route: 042
     Dates: start: 2016

REACTIONS (2)
  - Product substitution issue [None]
  - Blood pressure increased [Not Recovered/Not Resolved]

NARRATIVE: CASE EVENT DATE: 201602
